FAERS Safety Report 15081260 (Version 1)
Quarter: 2018Q2

REPORT INFORMATION
  Report Type: Spontaneous
  Country: US (occurrence: US)
  Receive Date: 20180628
  Receipt Date: 20180628
  Transmission Date: 20180711
  Serious: No
  Sender: FDA-Public Use
  Company Number: US-ACCORD-067047

PATIENT
  Age: 65 Year
  Sex: Male

DRUGS (2)
  1. CLONAZEPAM ACCORD [Suspect]
     Active Substance: CLONAZEPAM
     Indication: PANIC ATTACK
     Dosage: STRENGTH: 1 MG
     Route: 048
     Dates: start: 20180214
  2. CARTIA XT [Concomitant]
     Active Substance: DILTIAZEM HYDROCHLORIDE
     Indication: ATRIAL TACHYCARDIA
     Dosage: STRENGTH: 180 MG

REACTIONS (8)
  - Chills [Unknown]
  - Memory impairment [Unknown]
  - Lethargy [Unknown]
  - Heart rate increased [Unknown]
  - Product substitution issue [Unknown]
  - Disorientation [Unknown]
  - Apathy [Unknown]
  - Headache [Unknown]
